FAERS Safety Report 7049394-1 (Version None)
Quarter: 2010Q4

REPORT INFORMATION
  Report Type: 
  Country: None (occurrence: None)
  Receive Date: 20101018
  Receipt Date: 20101011
  Transmission Date: 20110411
  Serious: Yes (Hospitalization)
  Sender: FDA-Public Use
  Company Number: CN-ROCHE-732514

PATIENT
  Age: 40 Year
  Sex: Male

DRUGS (2)
  1. PEGINTERFERON ALFA-2A [Suspect]
     Indication: HEPATITIS C
     Route: 058
     Dates: start: 20100301, end: 20100905
  2. RIBAVARIN [Concomitant]
     Indication: HEPATITIS C
     Route: 048
     Dates: start: 20100301, end: 20100905

REACTIONS (4)
  - ASCITES [None]
  - HEPATIC CIRRHOSIS [None]
  - RENAL CYST [None]
  - VIRAL LOAD INCREASED [None]
